FAERS Safety Report 10072552 (Version 2)
Quarter: 2014Q2

REPORT INFORMATION
  Report Type: Spontaneous
  Country: BR (occurrence: BR)
  Receive Date: 20140411
  Receipt Date: 20140411
  Transmission Date: 20141212
  Serious: Yes (Other)
  Sender: FDA-Public Use
  Company Number: BR-B.I. PHARMACEUTICALS,INC./RIDGEFIELD-2013-BI-38926BR

PATIENT
  Age: 61 Year
  Sex: Female
  Weight: 88 kg

DRUGS (10)
  1. PRADAXA [Suspect]
     Indication: ATRIAL FIBRILLATION
     Dosage: 300 MG
     Route: 048
     Dates: start: 201308
  2. METACOLINA CHLORIDE [Concomitant]
     Indication: PAIN
     Route: 048
     Dates: start: 201310
  3. SIMVASTATINA [Concomitant]
     Indication: BLOOD CHOLESTEROL INCREASED
     Dosage: 220 MG
     Route: 048
     Dates: start: 201310
  4. GLUCOSAMINA SULFATE [Concomitant]
     Indication: OSTEOARTHRITIS
     Route: 048
     Dates: start: 201310
  5. PIRIDOXINA [Concomitant]
     Indication: OSTEOARTHRITIS
     Route: 048
     Dates: start: 201310
  6. SERTRALINA HYDROCHLORIDE [Concomitant]
     Indication: DIABETES MELLITUS
     Dosage: 100 MG
     Route: 048
  7. METFORMIN HYDROCHLORIDE [Concomitant]
     Indication: DIABETES MELLITUS
     Dosage: 100 MG
     Route: 048
  8. ACETYL SALICYLIC ACID [Concomitant]
     Indication: BLOOD DISORDER
     Route: 065
  9. LOSARTAN [Concomitant]
     Indication: HYPERTENSION
     Route: 065
  10. METOPROLOL SUCCINATE [Concomitant]
     Indication: HYPERTENSION
     Route: 065

REACTIONS (2)
  - Cerebrovascular accident [Recovered/Resolved]
  - Thrombosis [Recovered/Resolved]
